FAERS Safety Report 16580536 (Version 2)
Quarter: 2019Q3

REPORT INFORMATION
  Report Type: Report from Study
  Country: US (occurrence: US)
  Receive Date: 20190716
  Receipt Date: 20190801
  Transmission Date: 20191004
  Serious: No
  Sender: FDA-Public Use
  Company Number: PHEH2019US028716

PATIENT
  Sex: Female

DRUGS (1)
  1. GLATOPA [Suspect]
     Active Substance: GLATIRAMER ACETATE
     Indication: MULTIPLE SCLEROSIS
     Dosage: 40 MG, UNK
     Route: 065
     Dates: start: 20190707

REACTIONS (6)
  - Malaise [Unknown]
  - Muscle disorder [Unknown]
  - Muscle tightness [Unknown]
  - Blood pressure abnormal [Unknown]
  - Dystonia [Unknown]
  - Head discomfort [Unknown]
